FAERS Safety Report 5953766-3 (Version None)
Quarter: 2008Q4

REPORT INFORMATION
  Report Type: 
  Country: None (occurrence: None)
  Receive Date: 20081114
  Receipt Date: 20081105
  Transmission Date: 20090506
  Serious: Yes (Other)
  Sender: FDA-Public Use
  Company Number: JP-ASTRAZENECA-2008AP08095

PATIENT
  Age: 79 Year
  Sex: Male

DRUGS (2)
  1. NAROPIN [Suspect]
     Indication: ANALGESIA
     Route: 008
  2. FENTANYL CITRATE [Concomitant]
     Indication: ANALGESIA
     Dosage: DOSE UNKNOWN
     Route: 008

REACTIONS (1)
  - EXTRADURAL HAEMATOMA [None]
